FAERS Safety Report 4999847-2 (Version None)
Quarter: 2006Q2

REPORT INFORMATION
  Report Type: 
  Country: None (occurrence: None)
  Receive Date: 20060509
  Receipt Date: 20060428
  Transmission Date: 20061013
  Serious: Yes (Hospitalization, Other)
  Sender: FDA-Public Use
  Company Number: 2006018677

PATIENT
  Age: 51 Year
  Sex: Female
  Weight: 74 kg

DRUGS (4)
  1. NICORETTE [Suspect]
     Indication: SMOKING CESSATION THERAPY
     Dosage: ONE 15 MG PATCH ONCE, TRANSDERMAL
     Route: 062
     Dates: start: 20060204, end: 20060204
  2. LEVOTHYROXINE SODIUM [Concomitant]
  3. KLIOGEST ^NOVO INDUSTRI^ (ESTRADIOL, NORETHISTERONE ACETATE) [Concomitant]
  4. IBUPROFEN [Concomitant]

REACTIONS (9)
  - ANGINA PECTORIS [None]
  - APPLICATION SITE IRRITATION [None]
  - APPLICATION SITE PRURITUS [None]
  - APPLICATION SITE SWELLING [None]
  - APPLICATION SITE WARMTH [None]
  - CHEST PAIN [None]
  - DYSPNOEA [None]
  - INCORRECT DOSE ADMINISTERED [None]
  - WHEEZING [None]
